FAERS Safety Report 14694334 (Version 2)
Quarter: 2018Q2

REPORT INFORMATION
  Report Type: Spontaneous
  Country: US (occurrence: US)
  Receive Date: 20180329
  Receipt Date: 20180417
  Transmission Date: 20180711
  Serious: Yes (Hospitalization)
  Sender: FDA-Public Use
  Company Number: US-PFIZER INC-2018128060

PATIENT
  Age: 50 Year
  Sex: Female

DRUGS (6)
  1. OXYCODONE [Concomitant]
     Active Substance: OXYCODONE
     Indication: PAIN
     Dosage: UNK
  2. LYRICA [Suspect]
     Active Substance: PREGABALIN
     Indication: NEURALGIA
     Dosage: 25 MG, UNK
  3. HYDROCODONE [Concomitant]
     Active Substance: HYDROCODONE
     Indication: PAIN
     Dosage: UNK, AS NEEDED (10/325 PRN 1 EVERY 4 HRS)
  4. LYRICA [Suspect]
     Active Substance: PREGABALIN
     Indication: THORACIC OPERATION
     Dosage: 50 MG, UNK
  5. MORPHINE [Concomitant]
     Active Substance: MORPHINE
     Dosage: UNK (UP TO 1G PER 10 MINS UP TO 2 )
  6. LYRICA [Suspect]
     Active Substance: PREGABALIN
     Dosage: 100 MG, UNK
     Dates: start: 20180204

REACTIONS (6)
  - Abdominal pain [Unknown]
  - Nausea [Unknown]
  - Anaphylactic shock [Unknown]
  - Pyrexia [Unknown]
  - Nightmare [Unknown]
  - Gastrointestinal disorder [Unknown]
